FAERS Safety Report 13738607 (Version 2)
Quarter: 2018Q2

REPORT INFORMATION
  Report Type: Spontaneous
  Country: US (occurrence: US)
  Receive Date: 20170710
  Receipt Date: 20180627
  Transmission Date: 20180711
  Serious: No
  Sender: FDA-Public Use
  Company Number: US-SAOL THERAPEUTICS-2017SAO00231

PATIENT
  Sex: Male

DRUGS (5)
  1. HYDROMORPHONE [Suspect]
     Active Substance: HYDROMORPHONE
     Dosage: UNK
     Route: 037
     Dates: start: 201708
  2. BACLOFEN. [Suspect]
     Active Substance: BACLOFEN
     Indication: SPINAL CORD INJURY
     Dosage: 57.68 ?G, \DAY
     Route: 037
  3. MORPHINE [Suspect]
     Active Substance: MORPHINE
     Dosage: UNK
     Route: 037
     Dates: end: 201708
  4. HYDROMORPHONE [Suspect]
     Active Substance: HYDROMORPHONE
     Dosage: 4.006 MG, \DAY
     Route: 037
  5. BACLOFEN. [Suspect]
     Active Substance: BACLOFEN
     Indication: MUSCLE SPASTICITY
     Dosage: UNK
     Route: 037

REACTIONS (4)
  - Therapy non-responder [Not Recovered/Not Resolved]
  - Malaise [Unknown]
  - Urinary retention [Recovered/Resolved]
  - Hyperhidrosis [Unknown]

NARRATIVE: CASE EVENT DATE: 201708
